FAERS Safety Report 18172345 (Version 2)
Quarter: 2020Q3

REPORT INFORMATION
  Report Type: Report from Study
  Country: ES (occurrence: ES)
  Receive Date: 20200820
  Receipt Date: 20200916
  Transmission Date: 20201103
  Serious: Yes (Hospitalization)
  Sender: FDA-Public Use
  Company Number: ES-ROCHE-2660547

PATIENT
  Age: 66 Year
  Sex: Female
  Weight: 53.4 kg

DRUGS (31)
  1. HIDROFEROL [Concomitant]
     Active Substance: CALCIFEDIOL
     Dates: start: 20200615
  2. PRIMPERAN [Concomitant]
     Active Substance: METOCLOPRAMIDE HYDROCHLORIDE
     Indication: NAUSEA
  3. DEXCHLORPHENIRAMINE [Concomitant]
     Active Substance: DEXCHLORPHENIRAMINE
     Dates: start: 20200611, end: 20200611
  4. NOLOTIL [Concomitant]
     Indication: ABDOMINAL PAIN UPPER
     Dates: start: 20200702
  5. PARACETAMOL [Concomitant]
     Active Substance: ACETAMINOPHEN
     Indication: PYREXIA
     Dates: start: 20200731, end: 20200731
  6. DEXCHLORPHENIRAMINE [Concomitant]
     Active Substance: DEXCHLORPHENIRAMINE
     Dates: start: 20200702, end: 20200702
  7. DUPHALAC [Concomitant]
     Active Substance: LACTULOSE
     Indication: CONSTIPATION
  8. OMEPRAZOLE. [Concomitant]
     Active Substance: OMEPRAZOLE
     Dates: start: 20200813
  9. PARACETAMOL [Concomitant]
     Active Substance: ACETAMINOPHEN
     Indication: ABDOMINAL PAIN UPPER
     Dates: start: 20200515, end: 20200702
  10. HALOPERIDOL. [Concomitant]
     Active Substance: HALOPERIDOL
     Indication: VOMITING
     Route: 042
     Dates: start: 20200615, end: 20200709
  11. DEXCHLORPHENIRAMINE [Concomitant]
     Active Substance: DEXCHLORPHENIRAMINE
     Dates: start: 20200716, end: 20200716
  12. ONDANSETRON [Concomitant]
     Active Substance: ONDANSETRON
     Dates: start: 20200618, end: 20200618
  13. ONDANSETRON [Concomitant]
     Active Substance: ONDANSETRON
     Dates: start: 20200702, end: 20200702
  14. MORPHINE [Concomitant]
     Active Substance: MORPHINE
     Indication: PAIN
     Dates: start: 20200618
  15. ATEZOLIZUMAB. [Suspect]
     Active Substance: ATEZOLIZUMAB
     Indication: PANCREATIC CARCINOMA METASTATIC
     Dosage: DOSE OF LAST STUDY DRUG ATEZOLIZUMAB ADMINISTERED PRIOR TO AE ONSET: 840 MG, ON 30/JUL/2020
     Route: 041
     Dates: start: 20200603
  16. ONDANSETRON [Concomitant]
     Active Substance: ONDANSETRON
     Dates: start: 20200709, end: 20200709
  17. ONDANSETRON [Concomitant]
     Active Substance: ONDANSETRON
     Dates: start: 20200716, end: 20200716
  18. BEVACIZUMAB. [Suspect]
     Active Substance: BEVACIZUMAB
     Indication: PANCREATIC CARCINOMA METASTATIC
     Dosage: DOSE OF LAST STUDY DRUG BEVACIZUMAB ADMINISTERED PRIOR TO AE ONSET:  552 MG, ON 30/JUL/2020: DATE OF
     Route: 042
     Dates: start: 20200603
  19. NAB?PACLITAXEL [Suspect]
     Active Substance: PACLITAXEL
     Indication: PANCREATIC CARCINOMA METASTATIC
     Dosage: ON 06/AUG/2020: DATE OF MOST RECENT DOSE OF PACLITAXEL PRIOR TO AE ONSET, DOSE OF LAST STUDY PACLITA
     Route: 042
     Dates: start: 20200603
  20. LORAZEPAM. [Concomitant]
     Active Substance: LORAZEPAM
     Dates: start: 20200615
  21. EBASTINE [Concomitant]
     Active Substance: EBASTINE
     Indication: RASH
     Dates: start: 20200615
  22. PANTOPRAZOLE [Concomitant]
     Active Substance: PANTOPRAZOLE
     Dates: start: 20200615, end: 20200618
  23. DEXCHLORPHENIRAMINE [Concomitant]
     Active Substance: DEXCHLORPHENIRAMINE
     Dates: start: 20200618, end: 20200618
  24. GEMCITABINE. [Suspect]
     Active Substance: GEMCITABINE
     Indication: PANCREATIC CARCINOMA METASTATIC
     Dosage: ON 06/AUG/2020:DATE OF MOST RECENT DOSE OF STUDY DRUG GEMCITABINE PRIOR TO AE ONSET, DOSE OF LAST ST
     Route: 042
     Dates: start: 20200603
  25. HIBOR [Concomitant]
     Dates: start: 20200615, end: 20200617
  26. DEXCHLORPHENIRAMINE [Concomitant]
     Active Substance: DEXCHLORPHENIRAMINE
     Dates: start: 20200709, end: 20200709
  27. ONDANSETRON [Concomitant]
     Active Substance: ONDANSETRON
     Route: 042
     Dates: start: 20200806, end: 20200806
  28. DEXCHLORPHENIRAMINE [Concomitant]
     Active Substance: DEXCHLORPHENIRAMINE
     Route: 042
     Dates: start: 20200806, end: 20200806
  29. ONDANSETRON [Concomitant]
     Active Substance: ONDANSETRON
     Dates: start: 20200611, end: 20200611
  30. FENTANYL. [Concomitant]
     Active Substance: FENTANYL
     Indication: PAIN
     Route: 061
     Dates: start: 20200713
  31. PUNTUAL [Concomitant]
     Indication: CONSTIPATION
     Dates: start: 20200702

REACTIONS (1)
  - Guillain-Barre syndrome [Recovered/Resolved]

NARRATIVE: CASE EVENT DATE: 20200813
